FAERS Safety Report 18990028 (Version 1)
Quarter: 2021Q1

REPORT INFORMATION
  Report Type: Spontaneous
  Country: CH (occurrence: CH)
  Receive Date: 20210310
  Receipt Date: 20210310
  Transmission Date: 20210420
  Serious: Yes (Death, Other)
  Sender: FDA-Public Use
  Company Number: CH-SUN PHARMACEUTICAL INDUSTRIES LTD-2021RR-284899

PATIENT
  Age: 52 Year
  Sex: Male

DRUGS (19)
  1. 5?FLUOROURACIL [Suspect]
     Active Substance: FLUOROURACIL
     Indication: ADENOCARCINOMA METASTATIC
     Dosage: 750 MILLIGRAM/SQ. METER, DAILY ON DAY 1?5 EVERY 3 WEEKS, 6 COURSES
     Route: 065
     Dates: start: 200403, end: 200408
  2. 5?FLUOROURACIL [Suspect]
     Active Substance: FLUOROURACIL
     Dosage: 2400 MILLIGRAM/SQ. METER, 1DOSE/2 WEEKS
     Route: 065
     Dates: start: 200601
  3. CYCLOPHOPHAMIDE [Suspect]
     Active Substance: CYCLOPHOSPHAMIDE
     Indication: ADENOCARCINOMA METASTATIC
     Dosage: UNK
     Route: 065
     Dates: end: 200705
  4. CETUXIMAB. [Suspect]
     Active Substance: CETUXIMAB
     Indication: ADENOCARCINOMA METASTATIC
     Dosage: 400 MILLIGRAM/SQ. METER, LOADING DOSE
     Route: 065
     Dates: start: 200601
  5. VINCRISTINE [Suspect]
     Active Substance: VINCRISTINE
     Indication: ADENOCARCINOMA METASTATIC
     Dosage: UNK
     Route: 065
     Dates: end: 200705
  6. 5?FLUOROURACIL [Suspect]
     Active Substance: FLUOROURACIL
     Dosage: 400 MILLIGRAM/SQ. METER, 1DOSE/2 WEEKS,ON DAY 1, BOLUS, 8 COURSES
     Route: 065
     Dates: start: 200503, end: 200507
  7. 5?FLUOROURACIL [Suspect]
     Active Substance: FLUOROURACIL
     Dosage: 2400 MILLIGRAM/SQ. METER, 1DOSE/2 WEEKS, 8 COURSES
     Route: 065
     Dates: start: 200503, end: 200507
  8. 5?FLUOROURACIL [Suspect]
     Active Substance: FLUOROURACIL
     Dosage: 400 MILLIGRAM/SQ. METER, ON DAY 1, 1DOSE/2 WEEKS, BOLUS
     Route: 065
     Dates: start: 200601
  9. 5?FLUOROURACIL [Suspect]
     Active Substance: FLUOROURACIL
     Dosage: 400 MILLIGRAM/SQ. METER, 1DOSE/2 WEEKS, BOLUS
     Route: 065
  10. IRINOTECAN [Suspect]
     Active Substance: IRINOTECAN
     Indication: ADENOCARCINOMA METASTATIC
     Dosage: 180 MILLIGRAM/SQ. METER, ON DAY 1, 1DOSE/2 WEEKS
     Route: 065
     Dates: start: 200503, end: 200507
  11. 5?FLUOROURACIL [Suspect]
     Active Substance: FLUOROURACIL
     Dosage: 2400 MILLIGRAM/SQ. METER, 1DOSE/2 WEEKS
     Route: 065
  12. FOLINIC ACID [Suspect]
     Active Substance: LEUCOVORIN
     Dosage: 200 MILLIGRAM/SQ. METER, 1DOSE/2 WEEKS
     Route: 065
  13. OXALIPLATIN. [Suspect]
     Active Substance: OXALIPLATIN
     Indication: ADENOCARCINOMA METASTATIC
     Dosage: 85 MILLIGRAM/SQ. METER, 1DOSE/2 WEEKS
     Route: 065
     Dates: start: 200601
  14. CISPLATIN. [Suspect]
     Active Substance: CISPLATIN
     Indication: ADENOCARCINOMA METASTATIC
     Dosage: 100 MILLIGRAM/SQ. METER, ON DAY 1, 1 DOSE/3 WEEKS, 6 COURSES
     Route: 065
     Dates: start: 200403, end: 200408
  15. DOXORUBICIN [Suspect]
     Active Substance: DOXORUBICIN
     Indication: ADENOCARCINOMA METASTATIC
     Dosage: UNK
     Route: 065
     Dates: end: 200705
  16. FOLINIC ACID [Suspect]
     Active Substance: LEUCOVORIN
     Indication: ADENOCARCINOMA METASTATIC
     Dosage: 200 MILLIGRAM/SQ. METER, 1DOSE/2 WEEKS, 8 COURSES
     Route: 065
     Dates: start: 200503, end: 200507
  17. FOLINIC ACID [Suspect]
     Active Substance: LEUCOVORIN
     Dosage: 200 MILLIGRAM/SQ. METER, 1DOSE/2 WEEKS
     Route: 065
     Dates: start: 200601
  18. IRINOTECAN [Suspect]
     Active Substance: IRINOTECAN
     Dosage: 180 MILLIGRAM/SQ. METER, 1DOSE/2 WEEKS
     Route: 065
  19. CETUXIMAB. [Suspect]
     Active Substance: CETUXIMAB
     Dosage: 250 MILLIGRAM/SQ. METER, WEEKLY
     Route: 065
     Dates: start: 200601

REACTIONS (5)
  - Disease progression [Fatal]
  - Drug ineffective [Unknown]
  - Rash [Unknown]
  - Neuropathy peripheral [Unknown]
  - Therapeutic product effect incomplete [Unknown]
